FAERS Safety Report 20558597 (Version 1)
Quarter: 2022Q1

REPORT INFORMATION
  Report Type: Spontaneous
  Country: GB (occurrence: GB)
  Receive Date: 20220307
  Receipt Date: 20220307
  Transmission Date: 20220424
  Serious: No
  Sender: FDA-Public Use
  Company Number: GB-EUSA PHARMA (UK) LIMITED-2022GB000023

PATIENT

DRUGS (14)
  1. SYLVANT [Suspect]
     Active Substance: SILTUXIMAB
     Indication: Castleman^s disease
     Dosage: CYCLE 1;1000 MG
     Route: 065
  2. SYLVANT [Suspect]
     Active Substance: SILTUXIMAB
     Dosage: CYCLE 2;1000 MG
     Route: 065
  3. SYLVANT [Suspect]
     Active Substance: SILTUXIMAB
     Dosage: CYCLE 3;1000 MG
     Route: 065
  4. SYLVANT [Suspect]
     Active Substance: SILTUXIMAB
     Dosage: CYCLE 4;1000 MG
     Route: 065
  5. SYLVANT [Suspect]
     Active Substance: SILTUXIMAB
     Dosage: CYCLE 5;1000 MG
     Route: 065
  6. SYLVANT [Suspect]
     Active Substance: SILTUXIMAB
     Dosage: CYCLE 6;1000 MG
     Route: 065
  7. SYLVANT [Suspect]
     Active Substance: SILTUXIMAB
     Dosage: CYCLE 7;1000 MG
     Route: 065
  8. SYLVANT [Suspect]
     Active Substance: SILTUXIMAB
     Dosage: CYCLE 8;1000 MG
     Route: 065
  9. SYLVANT [Suspect]
     Active Substance: SILTUXIMAB
     Dosage: CYCLE 9;1000 MG
     Route: 065
  10. SYLVANT [Suspect]
     Active Substance: SILTUXIMAB
     Dosage: CYCLE 10;1000 MG
     Route: 065
  11. SYLVANT [Suspect]
     Active Substance: SILTUXIMAB
     Dosage: CYCLE 11;1000 MG
     Route: 065
  12. SYLVANT [Suspect]
     Active Substance: SILTUXIMAB
     Dosage: CYCLE 12;1000 MG
     Route: 065
  13. SYLVANT [Suspect]
     Active Substance: SILTUXIMAB
     Dosage: CYCLE 13;1000 MG
     Route: 065
  14. SYLVANT [Suspect]
     Active Substance: SILTUXIMAB
     Dosage: CYCLE 14;1000 MG
     Route: 065

REACTIONS (1)
  - Liver function test increased [Unknown]
